FAERS Safety Report 11707502 (Version 1)
Quarter: 2015Q4

REPORT INFORMATION
  Report Type: Report from Study
  Country: US (occurrence: US)
  Receive Date: 20151106
  Receipt Date: 20151106
  Transmission Date: 20160304
  Serious: No
  Sender: FDA-Public Use
  Company Number: ALCN2015US006511

PATIENT
  Age: 48 Year
  Sex: Female

DRUGS (2)
  1. REFRESH                            /00880201/ [Concomitant]
     Active Substance: POLYVINYL ALCOHOL\POVIDONE
     Indication: PRODUCT USED FOR UNKNOWN INDICATION
     Route: 047
  2. ZADITOR [Suspect]
     Active Substance: KETOTIFEN FUMARATE
     Indication: HYPERSENSITIVITY
     Dosage: 1 GTT, QD
     Route: 047

REACTIONS (1)
  - Drug ineffective [Recovering/Resolving]
